FAERS Safety Report 7362006-2 (Version None)
Quarter: 2011Q1

REPORT INFORMATION
  Report Type: 
  Country: None (occurrence: None)
  Receive Date: 20110318
  Receipt Date: 20110310
  Transmission Date: 20110831
  Serious: Yes (Other)
  Sender: FDA-Public Use
  Company Number: US-ELI_LILLY_AND_COMPANY-US201103005182

PATIENT
  Sex: Female

DRUGS (2)
  1. HUMALOG MIX 75/25 [Suspect]
     Indication: DIABETES MELLITUS
     Dosage: 34 U, EACH MORNING
  2. HUMALOG MIX 75/25 [Suspect]
     Dosage: 10 U, EACH EVENING

REACTIONS (2)
  - INCORRECT DOSE ADMINISTERED [None]
  - BLINDNESS [None]
